FAERS Safety Report 9581799 (Version 3)
Quarter: 2014Q2

REPORT INFORMATION
  Report Type: Spontaneous
  Country: US (occurrence: US)
  Receive Date: 20131002
  Receipt Date: 20140409
  Transmission Date: 20141212
  Serious: Yes (Hospitalization)
  Sender: FDA-Public Use
  Company Number: US-B.I. PHARMACEUTICALS,INC./RIDGEFIELD-2013-BI-29939BP

PATIENT
  Age: 80 Year
  Sex: Female
  Weight: 77 kg

DRUGS (18)
  1. PRADAXA [Suspect]
     Indication: ANTICOAGULANT THERAPY
     Dosage: 300 MG
     Route: 065
     Dates: start: 20110301, end: 20120406
  2. ALBUTEROL INHALER [Concomitant]
     Route: 065
     Dates: start: 2008
  3. PROAIR HFA [Concomitant]
     Route: 065
     Dates: start: 2008
  4. DUONEB INHALER [Concomitant]
     Route: 065
     Dates: start: 2008
  5. ALIGN [Concomitant]
     Route: 065
     Dates: start: 2011, end: 2012
  6. CAPTOPRIL [Concomitant]
     Route: 048
     Dates: start: 2008, end: 2013
  7. DIGOXIN [Concomitant]
     Route: 048
     Dates: start: 2007, end: 2011
  8. FUROSEMIDE [Concomitant]
     Route: 048
     Dates: start: 2008, end: 2013
  9. LIPITOR [Concomitant]
     Dosage: 40 MG
     Route: 048
     Dates: start: 2008, end: 2013
  10. LYRICA [Concomitant]
     Route: 065
  11. MULTIVITAMIN [Concomitant]
     Route: 065
     Dates: start: 2006
  12. POTASSIUM [Concomitant]
     Route: 065
  13. SOTALOL [Concomitant]
     Route: 048
     Dates: start: 2006
  14. VITAMIN D [Concomitant]
     Route: 065
     Dates: start: 2007
  15. CALCIUM VITAMIN D [Concomitant]
     Route: 065
  16. IRON [Concomitant]
     Route: 065
  17. MAG-OX [Concomitant]
     Route: 065
  18. OMEPRAZOLE [Concomitant]
     Route: 065

REACTIONS (3)
  - Gastrointestinal haemorrhage [Unknown]
  - Anaemia [Unknown]
  - Chest pain [Recovered/Resolved]
